FAERS Safety Report 6189876-8 (Version None)
Quarter: 2009Q2

REPORT INFORMATION
  Report Type: 
  Country: None (occurrence: None)
  Receive Date: 20090514
  Receipt Date: 20090504
  Transmission Date: 20091009
  Serious: Yes (Other)
  Sender: FDA-Public Use
  Company Number: US-AMGEN-COG345598

PATIENT
  Sex: Female

DRUGS (2)
  1. ENBREL [Suspect]
     Indication: RHEUMATOID ARTHRITIS
     Route: 058
  2. METHOTREXATE [Concomitant]
     Route: 048

REACTIONS (8)
  - COUGH [None]
  - INCREASED TENDENCY TO BRUISE [None]
  - NASAL CONGESTION [None]
  - PAIN [None]
  - PHOTOSENSITIVITY REACTION [None]
  - PULMONARY GRANULOMA [None]
  - RESPIRATORY TRACT CONGESTION [None]
  - SEASONAL ALLERGY [None]
